FAERS Safety Report 8324697 (Version 4)
Quarter: 2014Q3

REPORT INFORMATION
  Report Type: Spontaneous
  Country: DE (occurrence: DE)
  Receive Date: 20120106
  Receipt Date: 20140729
  Transmission Date: 20150326
  Serious: Yes (Life-Threatening, Hospitalization, Other)
  Sender: FDA-Public Use
  Company Number: DE-RANBAXY-2011RR-51631

PATIENT
  Age: 78 Year
  Sex: Female
  Weight: 80 kg

DRUGS (5)
  1. SPIROBETA [Suspect]
     Active Substance: SPIRONOLACTONE
     Indication: CARDIAC FAILURE
     Dosage: 50 MG, QD
     Route: 048
     Dates: start: 2005, end: 20111030
  2. RAMILICH [Suspect]
     Active Substance: RAMIPRIL
     Indication: CARDIAC FAILURE
     Dosage: 10 MG, QD
     Route: 048
     Dates: start: 2005, end: 20111030
  3. IBUPROFEN. [Suspect]
     Active Substance: IBUPROFEN
     Indication: PRODUCT USED FOR UNKNOWN INDICATION
     Dosage: 400 MG, QD
     Route: 048
     Dates: start: 201108, end: 20111030
  4. FUROBETA [Concomitant]
     Indication: PRODUCT USED FOR UNKNOWN INDICATION
     Dosage: 40 MG/DAY
     Route: 048
     Dates: start: 2003
  5. INDOMETACIN [Concomitant]
     Active Substance: INDOMETHACIN
     Indication: PRODUCT USED FOR UNKNOWN INDICATION
     Dosage: UNK
     Route: 048
     Dates: start: 2009

REACTIONS (2)
  - Renal failure acute [Recovered/Resolved]
  - Hyperkalaemia [Recovered/Resolved]

NARRATIVE: CASE EVENT DATE: 20111031
